FAERS Safety Report 7791634-5 (Version None)
Quarter: 2011Q4

REPORT INFORMATION
  Report Type: 
  Country: None (occurrence: None)
  Receive Date: 20111003
  Receipt Date: 20110926
  Transmission Date: 20120403
  Serious: Yes (Other)
  Sender: FDA-Public Use
  Company Number: CH-SANOFI-AVENTIS-2011SA063478

PATIENT
  Age: 69 Year
  Sex: Male

DRUGS (2)
  1. JEVTANA KIT [Suspect]
     Indication: PROSTATE CANCER
     Route: 042
  2. JEVTANA KIT [Suspect]
     Route: 042

REACTIONS (7)
  - SKIN NECROSIS [None]
  - ABSCESS [None]
  - PULMONARY HAEMORRHAGE [None]
  - CHOLESTASIS [None]
  - BACTERIAL SEPSIS [None]
  - HAEMOLYTIC ANAEMIA [None]
  - BLOOD LACTATE DEHYDROGENASE INCREASED [None]
